FAERS Safety Report 9586586 (Version 1)
Quarter: 2013Q4

REPORT INFORMATION
  Report Type: Report from Study
  Country: US (occurrence: US)
  Receive Date: 20131003
  Receipt Date: 20131003
  Transmission Date: 20140711
  Serious: No
  Sender: FDA-Public Use
  Company Number: US-VERTEX PHARMACEUTICALS INC-2013-010107

PATIENT
  Age: 57 Year
  Sex: Male
  Weight: 90.7 kg

DRUGS (3)
  1. VX-950 (TELAPREVIR) [Suspect]
     Indication: HEPATITIS C
     Dosage: 750 MG, TID
     Route: 048
     Dates: start: 201309
  2. RIBAVIRIN [Suspect]
     Indication: HEPATITIS C
     Dosage: 3 TABS, BID
     Route: 048
     Dates: start: 201309
  3. PEGASYS [Suspect]
     Indication: HEPATITIS C
     Dosage: 180 ?G, QW
     Route: 058
     Dates: start: 201309

REACTIONS (2)
  - Anorectal discomfort [Not Recovered/Not Resolved]
  - Nausea [Not Recovered/Not Resolved]
